FAERS Safety Report 9942093 (Version 2)
Quarter: 2014Q1

REPORT INFORMATION
  Report Type: Report from Study
  Country: US (occurrence: US)
  Receive Date: 20140303
  Receipt Date: 20140303
  Transmission Date: 20141002
  Serious: No
  Sender: FDA-Public Use
  Company Number: US-ABBVIE-12P-163-1021553-00

PATIENT
  Sex: Male
  Weight: 86.26 kg

DRUGS (6)
  1. HUMIRA [Suspect]
     Indication: RHEUMATOID ARTHRITIS
     Route: 058
     Dates: start: 2009
  2. METFORMIN [Concomitant]
     Indication: DIABETES MELLITUS
  3. HUMALOG [Concomitant]
     Indication: DIABETES MELLITUS
  4. WARFARIN [Concomitant]
     Indication: ATRIAL FIBRILLATION
  5. FLECANIDE [Concomitant]
     Indication: ATRIAL FIBRILLATION
  6. DILTIAZEM [Concomitant]
     Indication: ATRIAL FIBRILLATION

REACTIONS (9)
  - Unevaluable event [Recovered/Resolved]
  - Injection site pain [Recovered/Resolved]
  - Chronic obstructive pulmonary disease [Not Recovered/Not Resolved]
  - Sinusitis [Recovered/Resolved]
  - Tooth disorder [Recovered/Resolved]
  - Infection [Recovered/Resolved]
  - Haematochezia [Not Recovered/Not Resolved]
  - Anaemia [Not Recovered/Not Resolved]
  - Dyspnoea [Not Recovered/Not Resolved]
